FAERS Safety Report 4805932-8 (Version None)
Quarter: 2005Q4

REPORT INFORMATION
  Report Type: 
  Country: None (occurrence: None)
  Receive Date: 20051019
  Receipt Date: 20051003
  Transmission Date: 20060501
  Serious: Yes (Other)
  Sender: FDA-Public Use
  Company Number: USA0510109872

PATIENT
  Age: 88 Year
  Sex: Female

DRUGS (1)
  1. FORTEO [Suspect]
     Indication: OSTEOPOROSIS
     Dates: end: 20050901

REACTIONS (11)
  - BACK PAIN [None]
  - DIARRHOEA [None]
  - FALL [None]
  - GASTROINTESTINAL DISORDER [None]
  - HIP FRACTURE [None]
  - IMMOBILE [None]
  - IMPAIRED SELF-CARE [None]
  - PAIN [None]
  - PHARMACEUTICAL PRODUCT COMPLAINT [None]
  - THERAPY NON-RESPONDER [None]
  - WEIGHT DECREASED [None]
